FAERS Safety Report 9958468 (Version 1)
Quarter: 2014Q1

REPORT INFORMATION
  Report Type: Spontaneous
  Country: FR (occurrence: FR)
  Receive Date: 20140305
  Receipt Date: 20140305
  Transmission Date: 20141002
  Serious: Yes (Other)
  Sender: FDA-Public Use
  Company Number: FR-AMGEN-FRASP2014015353

PATIENT
  Age: 43 Year
  Sex: Male

DRUGS (2)
  1. ENBREL [Suspect]
     Indication: PRODUCT USED FOR UNKNOWN INDICATION
     Dosage: 50 MG, 2X/WEEK
     Route: 058
     Dates: start: 20140108, end: 20140122
  2. RIFINAH [Concomitant]
     Dosage: UNK
     Dates: start: 201311

REACTIONS (4)
  - Injection site reaction [Recovered/Resolved]
  - Injection site oedema [Recovered/Resolved]
  - Injection site erythema [Recovered/Resolved]
  - Injection site pruritus [Recovered/Resolved]
